FAERS Safety Report 12741152 (Version 1)
Quarter: 2016Q3

REPORT INFORMATION
  Report Type: Report from Study
  Country: KR (occurrence: KR)
  Receive Date: 20160914
  Receipt Date: 20160914
  Transmission Date: 20161109
  Serious: Yes (Other)
  Sender: FDA-Public Use
  Company Number: KR-BAXTER-2016BAX047143

PATIENT
  Age: 2 Year
  Sex: Female

DRUGS (1)
  1. BAXTER SEVOFLURANE [Suspect]
     Active Substance: SEVOFLURANE
     Indication: GENERAL ANAESTHESIA
     Route: 055

REACTIONS (2)
  - Oxygen saturation decreased [Unknown]
  - Laryngospasm [Unknown]
